FAERS Safety Report 10012531 (Version 1)
Quarter: 2014Q1

REPORT INFORMATION
  Report Type: Spontaneous
  Country: HU (occurrence: HU)
  Receive Date: 20140314
  Receipt Date: 20140314
  Transmission Date: 20141002
  Serious: Yes (Hospitalization)
  Sender: FDA-Public Use
  Company Number: HU-VERTEX PHARMACEUTICALS INC-2014-001250

PATIENT
  Age: 61 Year
  Sex: Female

DRUGS (8)
  1. INCIVO [Suspect]
     Indication: CHRONIC HEPATITIS C
     Route: 048
     Dates: start: 20131104, end: 20140106
  2. PEGINTERFERON ALFA-2A [Suspect]
     Indication: CHRONIC HEPATITIS C
     Dosage: DOSAGE FORM: UNKNOWN
     Route: 065
     Dates: start: 20131104
  3. RIBAVIRIN [Suspect]
     Indication: CHRONIC HEPATITIS C
     Dosage: DOSAGE FORM: TABLET
     Route: 048
     Dates: start: 20131104
  4. RAMIPRIL [Concomitant]
     Indication: HYPERTENSION
  5. TRIMETAZIDINE [Concomitant]
     Indication: HYPERTENSION
     Dosage: DOSAGE FORM: TABLET
  6. ATENOLOL [Concomitant]
  7. ASA [Concomitant]
  8. CITALOPRAM [Concomitant]
     Indication: DEPRESSION

REACTIONS (2)
  - Gastroenteritis [Recovered/Resolved]
  - Clostridium difficile infection [Unknown]
